FAERS Safety Report 6327685-7 (Version None)
Quarter: 2009Q3

REPORT INFORMATION
  Report Type: 
  Country: None (occurrence: None)
  Receive Date: 20090825
  Receipt Date: 20090824
  Transmission Date: 20100115
  Serious: Yes (Hospitalization)
  Sender: FDA-Public Use
  Company Number: PHHO2006IT12182

PATIENT
  Sex: Male
  Weight: 60 kg

DRUGS (1)
  1. AMN107 AMN+CAP [Suspect]
     Indication: BLAST CRISIS IN MYELOGENOUS LEUKAEMIA
     Dosage: 400 MG, BID
     Route: 048
     Dates: start: 20060622, end: 20060629

REACTIONS (5)
  - CYTOMEGALOVIRUS INFECTION [None]
  - GENERAL PHYSICAL HEALTH DETERIORATION [None]
  - PERFORMANCE STATUS DECREASED [None]
  - STOMATITIS [None]
  - TRANSAMINASES INCREASED [None]
